FAERS Safety Report 19949693 (Version 1)
Quarter: 2021Q4

REPORT INFORMATION
  Report Type: Spontaneous
  Country: US (occurrence: US)
  Receive Date: 20211012
  Receipt Date: 20211012
  Transmission Date: 20220303
  Serious: Yes (Hospitalization)
  Sender: FDA-Public Use
  Company Number: None

PATIENT
  Sex: Male

DRUGS (22)
  1. DALFAMPRIDINE [Suspect]
     Active Substance: DALFAMPRIDINE
     Indication: Multiple sclerosis
     Route: 048
     Dates: start: 20181024
  2. ALBUTEROL [Concomitant]
     Active Substance: ALBUTEROL
  3. AMBIEN [Concomitant]
     Active Substance: ZOLPIDEM TARTRATE
  4. ACETAMINOPHEN\CODEINE PHOSPHATE [Concomitant]
     Active Substance: ACETAMINOPHEN\CODEINE PHOSPHATE
  5. ASPIRIN [Concomitant]
     Active Substance: ASPIRIN
  6. ATORVASTATIN [Concomitant]
     Active Substance: ATORVASTATIN
  7. BACLOFEN [Concomitant]
     Active Substance: BACLOFEN
  8. BENADRYL [Concomitant]
     Active Substance: DIPHENHYDRAMINE HYDROCHLORIDE
  9. BIOTIN [Concomitant]
     Active Substance: BIOTIN
  10. BUPROPN [Concomitant]
  11. CLONAZEPAM [Concomitant]
     Active Substance: CLONAZEPAM
  12. CLOPIDOGREL [Concomitant]
     Active Substance: CLOPIDOGREL BISULFATE
  13. DIFLUCAN [Concomitant]
     Active Substance: FLUCONAZOLE
  14. ENTRESTO [Concomitant]
     Active Substance: SACUBITRIL\VALSARTAN
  15. FISH OIL [Concomitant]
     Active Substance: FISH OIL
  16. FLOMAX [Concomitant]
     Active Substance: TAMSULOSIN HYDROCHLORIDE
  17. HYDROXYZINE HYDROCHLORIDE [Concomitant]
     Active Substance: HYDROXYZINE HYDROCHLORIDE
  18. IPRATROPIUM/ALB [Concomitant]
  19. LINZESS [Concomitant]
     Active Substance: LINACLOTIDE
  20. LORAZEPAM [Concomitant]
     Active Substance: LORAZEPAM
  21. MAGNESIUM OX [Concomitant]
  22. METOPROLOL TARTRATE [Concomitant]
     Active Substance: METOPROLOL TARTRATE

REACTIONS (9)
  - Hip arthroplasty [None]
  - Depression [None]
  - Disease progression [None]
  - Urinary tract infection [None]
  - Constipation [None]
  - Rash [None]
  - Sleep apnoea syndrome [None]
  - Micturition urgency [None]
  - Pollakiuria [None]
